FAERS Safety Report 16730409 (Version 1)
Quarter: 2019Q4

REPORT INFORMATION
  Report Type: Spontaneous
  Country: US (occurrence: US)
  Receive Date: 20190821
  Receipt Date: 20190821
  Transmission Date: 20200122
  Serious: Yes (Hospitalization, Disabling, Other)
  Sender: FDA-Public Use
  Company Number: None

PATIENT
  Age: 86 Year
  Sex: Female
  Weight: 59.6 kg

DRUGS (1)
  1. LEVITERACETAM [Suspect]
     Active Substance: LEVETIRACETAM
     Indication: SEIZURE PROPHYLAXIS
     Dates: start: 20190716, end: 20190723

REACTIONS (6)
  - Leukocytosis [None]
  - Eosinophilia [None]
  - Delirium [None]
  - Lethargy [None]
  - Restlessness [None]
  - Aphasia [None]

NARRATIVE: CASE EVENT DATE: 20190720
